FAERS Safety Report 23556308 (Version 1)
Quarter: 2024Q1

REPORT INFORMATION
  Report Type: Report from Study
  Country: US (occurrence: US)
  Receive Date: 20240223
  Receipt Date: 20240223
  Transmission Date: 20240409
  Serious: Yes (Hospitalization, Other)
  Sender: FDA-Public Use
  Company Number: US-ABBVIE-5646120

PATIENT
  Age: 49 Year
  Sex: Female

DRUGS (1)
  1. RINVOQ [Suspect]
     Active Substance: UPADACITINIB
     Indication: Dermatitis atopic
     Route: 048
     Dates: start: 20231011

REACTIONS (13)
  - Hospitalisation [Unknown]
  - Colitis [Recovered/Resolved]
  - Respiratory symptom [Recovered/Resolved]
  - Herpes zoster [Recovered/Resolved]
  - Blood loss anaemia [Recovered/Resolved]
  - Dermatitis atopic [Recovered/Resolved]
  - Haematochezia [Recovered/Resolved]
  - Dry eye [Recovered/Resolved]
  - Nasopharyngitis [Unknown]
  - Illness [Unknown]
  - Impaired work ability [Unknown]
  - Gastrointestinal pain [Unknown]
  - Lip dry [Recovered/Resolved]

NARRATIVE: CASE EVENT DATE: 20231001
